FAERS Safety Report 8533922-0 (Version None)
Quarter: 2012Q3

REPORT INFORMATION
  Report Type: 
  Country: None (occurrence: None)
  Receive Date: 20120724
  Receipt Date: 20120710
  Transmission Date: 20120928
  Serious: Yes (Other)
  Sender: FDA-Public Use
  Company Number: AU-JNJFOC-20120708259

PATIENT
  Sex: Female

DRUGS (3)
  1. VITAMIN D [Concomitant]
     Route: 064
  2. CALCIUM CARBONATE [Concomitant]
     Route: 064
  3. REMICADE [Suspect]
     Indication: FOETAL EXPOSURE DURING PREGNANCY
     Route: 064

REACTIONS (2)
  - MATERNAL DRUGS AFFECTING FOETUS [None]
  - PREMATURE BABY [None]
